FAERS Safety Report 5049739-8 (Version None)
Quarter: 2006Q3

REPORT INFORMATION
  Report Type: 
  Country: None (occurrence: None)
  Receive Date: 20060707
  Receipt Date: 20060627
  Transmission Date: 20061208
  Serious: Yes (Hospitalization)
  Sender: FDA-Public Use
  Company Number: 2006BI009219

PATIENT
  Age: 58 Year
  Sex: Female
  Weight: 64.8644 kg

DRUGS (4)
  1. AVONEX [Suspect]
     Indication: MULTIPLE SCLEROSIS
     Dosage: 30 UG; QW; IM
     Route: 030
     Dates: start: 20030705, end: 20040101
  2. AVONEX [Suspect]
     Indication: MULTIPLE SCLEROSIS
     Dosage: 30 UG; QW; IM
     Route: 030
     Dates: start: 20040101
  3. BLOOD PRESSURE MEDICATION [Concomitant]
  4. PLAVIX [Concomitant]

REACTIONS (5)
  - EYE IRRITATION [None]
  - EYE SWELLING [None]
  - INFLUENZA LIKE ILLNESS [None]
  - SPINAL CORD DISORDER [None]
  - SPINAL OSTEOARTHRITIS [None]
